FAERS Safety Report 9064145 (Version 1)
Quarter: 2013Q1

REPORT INFORMATION
  Report Type: Spontaneous
  Country: US (occurrence: US)
  Receive Date: 20130128
  Receipt Date: 20130128
  Transmission Date: 20140127
  Serious: No
  Sender: FDA-Public Use
  Company Number: US-MYLANLABS-2012S1022365

PATIENT
  Age: 85 Year
  Sex: Female
  Weight: 46.72 kg

DRUGS (7)
  1. CLONIDINE TRANSDERMAL SYSTEM [Suspect]
     Indication: BLOOD PRESSURE INCREASED
     Dosage: CHANGE WEEKLY
     Route: 062
     Dates: start: 2012, end: 20121025
  2. CLONIDINE [Suspect]
     Indication: ADHESION
     Route: 062
     Dates: start: 2012, end: 2012
  3. DIOVAN [Concomitant]
     Indication: BLOOD PRESSURE INCREASED
     Dates: start: 201207
  4. BYSTOLIC [Concomitant]
     Indication: BLOOD PRESSURE INCREASED
     Dates: start: 201207
  5. ASA [Concomitant]
  6. LUMIGAN [Concomitant]
     Indication: GLAUCOMA
     Route: 031
  7. CLONIDINE [Concomitant]
     Indication: BLOOD PRESSURE INCREASED
     Route: 048

REACTIONS (2)
  - Application site erythema [Not Recovered/Not Resolved]
  - Application site pruritus [Not Recovered/Not Resolved]
